FAERS Safety Report 18269182 (Version 1)
Quarter: 2020Q3

REPORT INFORMATION
  Report Type: Spontaneous
  Country: FR (occurrence: FR)
  Receive Date: 20200915
  Receipt Date: 20200915
  Transmission Date: 20201103
  Serious: Yes (Hospitalization, Other)
  Sender: FDA-Public Use
  Company Number: FR-JAZZ-2019-FR-013681

PATIENT

DRUGS (4)
  1. METHYLPREDNISOLONE. [Suspect]
     Active Substance: METHYLPREDNISOLONE
     Indication: PREMEDICATION
     Dosage: 40 MG, UNK
     Route: 041
     Dates: start: 20190729, end: 20190729
  2. KIDROLASE [Suspect]
     Active Substance: ASPARAGINASE
     Indication: T-CELL LYMPHOMA
     Dosage: 11200 MG, UNK
     Route: 041
     Dates: start: 20190730, end: 20190730
  3. GEMCITABINE. [Suspect]
     Active Substance: GEMCITABINE
     Indication: T-CELL LYMPHOMA
     Dosage: 1800 MG, UNK
     Route: 041
     Dates: start: 20190729, end: 20190729
  4. METHOTREXATE MYLAN [Suspect]
     Active Substance: METHOTREXATE SODIUM
     Indication: T-CELL LYMPHOMA
     Dosage: 5700 MG, UNK
     Route: 041

REACTIONS (1)
  - Tonic clonic movements [Recovered/Resolved]

NARRATIVE: CASE EVENT DATE: 20190731
